FAERS Safety Report 8145325-1 (Version None)
Quarter: 2012Q1

REPORT INFORMATION
  Report Type: 
  Country: None (occurrence: None)
  Receive Date: 20120103
  Receipt Date: 20111007
  Transmission Date: 20120608
  Serious: No
  Sender: FDA-Public Use
  Company Number: AE-2011-001819

PATIENT
  Age: 63 Year
  Sex: Male
  Weight: 106.5953 kg

DRUGS (15)
  1. PAXIL [Concomitant]
  2. CLONAZEPAM [Concomitant]
  3. ALLOPURINOL [Concomitant]
  4. INCIVEK [Suspect]
     Dosage: 2250 MG (750 MG, 1 IN 8 HR)  , ORAL
     Route: 048
     Dates: start: 20110919
  5. BENADRYL [Concomitant]
  6. DILAUDID [Concomitant]
  7. LACTOLOSE (LACTULOSE) [Concomitant]
  8. RIBAVIRIN [Concomitant]
  9. COLACE (DOCUSATE SODIUM) [Concomitant]
  10. HEART MEDICATION [Concomitant]
  11. BETA BLOCKER [Concomitant]
  12. WARFARIN SODIUM [Concomitant]
  13. PEGASYS [Concomitant]
  14. ALDACTONE (DIURETICS) [Concomitant]
  15. TRIAMETERENE HCL (DYAZIDE) [Concomitant]

REACTIONS (3)
  - RECTAL HAEMORRHAGE [None]
  - NAUSEA [None]
  - RASH [None]
